FAERS Safety Report 5426869-X (Version None)
Quarter: 2007Q3

REPORT INFORMATION
  Report Type: 
  Country: None (occurrence: None)
  Receive Date: 20070827
  Receipt Date: 20070817
  Transmission Date: 20080115
  Serious: Yes (Other)
  Sender: FDA-Public Use
  Company Number: GB-BOEHRINGER INGELHEIM PHARMACEUTICALS, INC.-2007-UK-02613UK

PATIENT
  Sex: Male

DRUGS (1)
  1. APTIVUS [Suspect]

REACTIONS (1)
  - CONGENITAL APLASTIC ANAEMIA [None]
